FAERS Safety Report 5925023-2 (Version None)
Quarter: 2008Q3

REPORT INFORMATION
  Report Type: 
  Country: None (occurrence: None)
  Receive Date: 20080909
  Receipt Date: 20070911
  Transmission Date: 20090109
  Serious: Yes (Death, Other)
  Sender: FDA-Public Use
  Company Number: 163-20785-07081654

PATIENT
  Age: 57 Year
  Sex: Female

DRUGS (1)
  1. THALOMID [Suspect]
     Indication: OVARIAN CANCER
     Dosage: 50 MG, 1 IN 1 D, ORAL
     Route: 048
     Dates: start: 20060830, end: 20070413

REACTIONS (4)
  - ABDOMINAL NEOPLASM [None]
  - ASCITES [None]
  - FATIGUE [None]
  - OVARIAN CANCER [None]
